FAERS Safety Report 20439174 (Version 1)
Quarter: 2022Q1

REPORT INFORMATION
  Report Type: Spontaneous
  Country: US (occurrence: None)
  Receive Date: 20220204
  Receipt Date: 20220204
  Transmission Date: 20220423
  Serious: Yes (Disabling)
  Sender: FDA-Public Use
  Company Number: None

PATIENT
  Age: 59 Year
  Sex: Female
  Weight: 57.6 kg

DRUGS (5)
  1. ZOMETA [Suspect]
     Active Substance: ZOLEDRONIC ACID
     Indication: Breast cancer metastatic
     Dosage: OTHER FREQUENCY : ONCE A MONTH;?
     Route: 042
     Dates: start: 20180430, end: 20210531
  2. XGEVA [Suspect]
     Active Substance: DENOSUMAB
     Dosage: OTHER FREQUENCY : QUARTERLY;?
     Route: 030
     Dates: start: 20210531, end: 20211130
  3. IBRANCE [Concomitant]
     Active Substance: PALBOCICLIB
  4. LETROZOLE [Concomitant]
     Active Substance: LETROZOLE
  5. ONE-A-DAY NOS [Concomitant]
     Active Substance: MINERALS\VITAMINS

REACTIONS (2)
  - Tooth fracture [None]
  - Osteonecrosis of jaw [None]

NARRATIVE: CASE EVENT DATE: 20210717
